FAERS Safety Report 8261880-5 (Version None)
Quarter: 2012Q1

REPORT INFORMATION
  Report Type: 
  Country: None (occurrence: None)
  Receive Date: 20120321
  Receipt Date: 20110118
  Transmission Date: 20120608
  Serious: Yes (Hospitalization)
  Sender: FDA-Public Use
  Company Number: 2011SP002534

PATIENT
  Age: 53 Year
  Sex: Female

DRUGS (8)
  1. LISINOPRIL [Concomitant]
  2. PEG-INTRON [Suspect]
     Indication: HEPATITIS C
     Dosage: QW; SC
     Route: 058
     Dates: start: 20101022
  3. PREMARIN [Concomitant]
  4. NEXIUM [Concomitant]
  5. ZOLOFT [Concomitant]
  6. PRILOSEC [Concomitant]
  7. RIBASPHERE [Suspect]
     Indication: HEPATITIS C
  8. VALTREX [Concomitant]

REACTIONS (2)
  - ANAEMIA [None]
  - PALPITATIONS [None]
